FAERS Safety Report 8313199-1 (Version None)
Quarter: 2012Q2

REPORT INFORMATION
  Report Type: 
  Country: None (occurrence: None)
  Receive Date: 20120426
  Receipt Date: 20120419
  Transmission Date: 20120825
  Serious: Yes (Other)
  Sender: FDA-Public Use
  Company Number: US-BAYER-2012-040273

PATIENT
  Age: 61 Year
  Sex: Male
  Weight: 78 kg

DRUGS (13)
  1. PLATELETS [Concomitant]
     Dosage: 270 ML, UNK
     Route: 042
  2. ANCEF [Concomitant]
     Dosage: 20 MEQ, UNK
     Route: 042
     Dates: start: 20050823, end: 20050823
  3. ETOMIDATE [Concomitant]
     Dosage: UNK
     Dates: start: 20050823, end: 20050823
  4. PROTAMINE SULFATE [Concomitant]
     Dosage: UNK
     Dates: start: 20050823, end: 20050823
  5. VERSED [Concomitant]
     Dosage: UNK
     Dates: start: 20050823, end: 20050823
  6. ANECTINE [Concomitant]
     Dosage: UNK
     Dates: start: 20050823, end: 20050823
  7. HEPARIN [Concomitant]
     Dosage: UNK
     Dates: start: 20050823, end: 20050823
  8. TRASYLOL [Suspect]
     Indication: CORONARY ARTERY BYPASS
     Dosage: 1 ML TEST DOSE, 2.5 CC AT 16:55 FOLLOWED BY 100CC AT 25 CC/HR
     Route: 042
     Dates: start: 20050823, end: 20050823
  9. CORDARONE [Concomitant]
     Dosage: UNK
     Dates: start: 20050823
  10. PAVULON [Concomitant]
     Dosage: UNK
     Dates: start: 20050823, end: 20050823
  11. DIGOXIN [Concomitant]
     Dosage: 0.5 G, UNK
     Route: 042
     Dates: start: 20050823, end: 20050823
  12. RED BLOOD CELLS [Concomitant]
     Dosage: 2 U, UNK
     Route: 042
  13. PLASMA [Concomitant]
     Dosage: 2 U, UNK
     Route: 042

REACTIONS (2)
  - RENAL FAILURE CHRONIC [None]
  - RENAL FAILURE ACUTE [None]
